FAERS Safety Report 8267957-2 (Version None)
Quarter: 2012Q2

REPORT INFORMATION
  Report Type: 
  Country: None (occurrence: None)
  Receive Date: 20120409
  Receipt Date: 20120329
  Transmission Date: 20120825
  Serious: Yes (Other)
  Sender: FDA-Public Use
  Company Number: PHEH2012US007028

PATIENT
  Sex: Female

DRUGS (1)
  1. DIOVAN [Suspect]

REACTIONS (4)
  - INNER EAR DISORDER [None]
  - BALANCE DISORDER [None]
  - MENIERE'S DISEASE [None]
  - TINNITUS [None]
